FAERS Safety Report 12849647 (Version 1)
Quarter: 2016Q4

REPORT INFORMATION
  Report Type: Spontaneous
  Country: US (occurrence: US)
  Receive Date: 20161014
  Receipt Date: 20161014
  Transmission Date: 20170207
  Serious: No
  Sender: FDA-Public Use
  Company Number: US-ROCHE-1755773

PATIENT
  Age: 77 Year
  Sex: Male

DRUGS (1)
  1. ESBRIET [Suspect]
     Active Substance: PIRFENIDONE
     Indication: IDIOPATHIC PULMONARY FIBROSIS
     Route: 048
     Dates: start: 20150724

REACTIONS (5)
  - Sputum discoloured [Unknown]
  - Cough [Unknown]
  - Respiratory tract infection [Unknown]
  - Photosensitivity reaction [Unknown]
  - Feeling jittery [Unknown]

NARRATIVE: CASE EVENT DATE: 20160514
